FAERS Safety Report 7368569-5 (Version None)
Quarter: 2011Q1

REPORT INFORMATION
  Report Type: 
  Country: None (occurrence: None)
  Receive Date: 20110323
  Receipt Date: 20110314
  Transmission Date: 20110831
  Serious: Yes (Death)
  Sender: FDA-Public Use
  Company Number: JP-JNJFOC-20110201867

PATIENT
  Age: 35 Year
  Sex: Male

DRUGS (4)
  1. ORTHOCLONE OKT3 [Suspect]
     Indication: RENAL TRANSPLANT
     Route: 042
  2. AZATHIOPRINE [Concomitant]
     Route: 048
  3. TACROLIMUS HYDRATE [Concomitant]
     Route: 065
  4. STEROIDS NOS [Concomitant]
     Route: 065

REACTIONS (1)
  - EPSTEIN-BARR VIRUS ASSOCIATED LYMPHOPROLIFERATIVE DISORDER [None]
